FAERS Safety Report 6137075-8 (Version None)
Quarter: 2009Q1

REPORT INFORMATION
  Report Type: 
  Country: None (occurrence: None)
  Receive Date: 20090326
  Receipt Date: 20090326
  Transmission Date: 20090719
  Serious: Yes (Hospitalization)
  Sender: FDA-Public Use
  Company Number: None

PATIENT
  Age: 65 Year
  Sex: Female

DRUGS (19)
  1. VANCOMYCIN HCL [Suspect]
     Indication: OSTEOMYELITIS
     Dosage: 1.25 GRAMS DAILY IV BOLUS PAST SEVERAL WEEKS
     Route: 040
  2. NORCO [Concomitant]
  3. ASPIRIN [Concomitant]
  4. NEURONTIN [Concomitant]
  5. CELEXA [Concomitant]
  6. VANCOMYCIN HCL [Concomitant]
  7. PREVACID [Concomitant]
  8. FLAGYL [Concomitant]
  9. LACTINEX [Concomitant]
  10. MAGNESIUM SULFATE [Concomitant]
  11. HYDRALAZINE HCL [Concomitant]
  12. LASIX [Concomitant]
  13. FERROUS SULFATE TAB [Concomitant]
  14. ENALAPRIL [Concomitant]
  15. COREG [Concomitant]
  16. NORVASC [Concomitant]
  17. SIMVASTATIN [Concomitant]
  18. METFORMIN HCL [Concomitant]
  19. ZOSYN [Concomitant]

REACTIONS (9)
  - CARDIAC FAILURE [None]
  - DIALYSIS [None]
  - DRUG ERUPTION [None]
  - METABOLIC ACIDOSIS [None]
  - NEPHROPATHY TOXIC [None]
  - RENAL FAILURE ACUTE [None]
  - SKIN EXFOLIATION [None]
  - STREPTOCOCCAL INFECTION [None]
  - URAEMIC ENCEPHALOPATHY [None]
